FAERS Safety Report 7898264-5 (Version None)
Quarter: 2011Q4

REPORT INFORMATION
  Report Type: 
  Country: None (occurrence: None)
  Receive Date: 20111107
  Receipt Date: 20111027
  Transmission Date: 20120403
  Serious: Yes (Other)
  Sender: FDA-Public Use
  Company Number: JP-GLAXOSMITHKLINE-B0752044A

PATIENT
  Sex: Female

DRUGS (7)
  1. AKINETON [Concomitant]
     Indication: EXTRAPYRAMIDAL DISORDER
     Dosage: 2MG PER DAY
     Route: 048
  2. EURODIN [Concomitant]
     Indication: INSOMNIA
     Dosage: 2MG PER DAY
     Route: 048
  3. LAMICTAL [Suspect]
     Indication: BIPOLAR DISORDER
     Dosage: 25MG PER DAY
     Route: 048
     Dates: start: 20110818, end: 20110909
  4. FUROSEMIDE [Concomitant]
     Indication: HYPERTENSION
     Dosage: 20MG PER DAY
     Route: 048
  5. ABILIFY [Concomitant]
     Indication: SCHIZOPHRENIA
     Dosage: 6MG PER DAY
     Route: 048
  6. INDERAL [Concomitant]
     Indication: TACHYCARDIA
     Dosage: 10MG PER DAY
     Route: 048
  7. REMERON [Concomitant]
     Indication: DEPRESSION
     Dosage: 45MG PER DAY
     Route: 048

REACTIONS (9)
  - OCULOMUCOCUTANEOUS SYNDROME [None]
  - LIP SWELLING [None]
  - C-REACTIVE PROTEIN ABNORMAL [None]
  - ORAL DISCOMFORT [None]
  - MOUTH ULCERATION [None]
  - RASH [None]
  - STOMATITIS [None]
  - OCULAR HYPERAEMIA [None]
  - HYPOPHAGIA [None]
